FAERS Safety Report 8242156-9 (Version None)
Quarter: 2012Q1

REPORT INFORMATION
  Report Type: 
  Country: None (occurrence: None)
  Receive Date: 20120314
  Receipt Date: 20110721
  Transmission Date: 20120608
  Serious: No
  Sender: FDA-Public Use
  Company Number: PHHY2011US65578

PATIENT
  Age: 42 Year
  Sex: Female
  Weight: 88.4 kg

DRUGS (6)
  1. LOVAZA [Concomitant]
  2. TOPAMAX [Concomitant]
  3. ADDERAL (AMFETAMINE ASPARTATE, AMFETAMINE SULFATE, DEXAMFETAMINE SACCH [Concomitant]
  4. ZOLOFT [Concomitant]
  5. FANAPT [Suspect]
     Indication: BIPOLAR DISORDER
     Dosage: 6 MG, BID, ORAL
     Route: 048
     Dates: start: 20101022, end: 20101027
  6. XANAX [Concomitant]

REACTIONS (2)
  - NASAL OEDEMA [None]
  - OEDEMA PERIPHERAL [None]
